FAERS Safety Report 6974257-7 (Version None)
Quarter: 2010Q3

REPORT INFORMATION
  Report Type: 
  Country: None (occurrence: None)
  Receive Date: 20100909
  Receipt Date: 20080701
  Transmission Date: 20110219
  Serious: No
  Sender: FDA-Public Use
  Company Number: US-WYE-H03889208

PATIENT
  Sex: Male

DRUGS (8)
  1. PROTONIX [Interacting]
     Dosage: UNKNOWN
     Route: 048
     Dates: start: 20070101
  2. SYNTHROID [Suspect]
     Indication: THYROID DISORDER
     Dosage: UNKNOWN
     Route: 048
  3. ASPIRIN [Suspect]
     Indication: BLOOD CHOLESTEROL INCREASED
     Dosage: UNKNOWN
     Route: 048
     Dates: end: 20070321
  4. LEVEMIR [Suspect]
     Indication: TYPE 2 DIABETES MELLITUS
     Dosage: 100 UNITS EVERY EVENING
     Route: 058
  5. FISH OIL, HYDROGENATED [Suspect]
     Indication: BLOOD CHOLESTEROL INCREASED
     Dosage: UNKNOWN
     Route: 048
     Dates: end: 20070312
  6. SYMLIN [Interacting]
     Indication: TYPE 2 DIABETES MELLITUS
     Dosage: 60 MCG PRIOR TO MEALS
     Route: 058
     Dates: start: 20070301, end: 20070316
  7. SYMLIN [Interacting]
     Dosage: 120 MCG PRIOR TO MEALS
     Route: 058
     Dates: start: 20070317
  8. INSULIN LISPRO [Suspect]
     Indication: TYPE 2 DIABETES MELLITUS
     Dosage: UNKNOWN
     Route: 058

REACTIONS (5)
  - BLOOD GLUCOSE DECREASED [None]
  - BLOOD GLUCOSE INCREASED [None]
  - DIABETES MELLITUS INADEQUATE CONTROL [None]
  - DRUG INTERACTION [None]
  - GASTRIC DISORDER [None]
